FAERS Safety Report 9115874 (Version 2)
Quarter: 2013Q2

REPORT INFORMATION
  Report Type: Spontaneous
  Country: US (occurrence: US)
  Receive Date: 20130225
  Receipt Date: 20130522
  Transmission Date: 20140414
  Serious: Yes (Death)
  Sender: FDA-Public Use
  Company Number: US-GLAXOSMITHKLINE-A1013117A

PATIENT
  Age: 46 Year
  Sex: Male

DRUGS (9)
  1. VOTRIENT [Suspect]
     Indication: RENAL CELL CARCINOMA
     Dosage: 800MG PER DAY
     Route: 048
     Dates: start: 20121128, end: 20130105
  2. 5-HTP [Concomitant]
  3. ACYCLOVIR [Concomitant]
  4. ALFUZOSIN [Concomitant]
  5. HYDROMORPHONE [Concomitant]
  6. OMEPRAZOLE [Concomitant]
  7. LORAZEPAM [Concomitant]
  8. PROCHLORPERAZINE [Concomitant]
  9. FRAGMIN [Concomitant]

REACTIONS (5)
  - Malignant neoplasm progression [Fatal]
  - Duodenal fistula [Unknown]
  - Upper gastrointestinal haemorrhage [Unknown]
  - Sepsis [Unknown]
  - Nephrectomy [Unknown]
